FAERS Safety Report 23068989 (Version 3)
Quarter: 2023Q4

REPORT INFORMATION
  Report Type: Spontaneous
  Country: BA (occurrence: BA)
  Receive Date: 20231016
  Receipt Date: 20231124
  Transmission Date: 20240109
  Serious: Yes (Death)
  Sender: FDA-Public Use
  Company Number: BA-002147023-NVSC2023BA214999

PATIENT

DRUGS (1)
  1. RUXOLITINIB [Suspect]
     Active Substance: RUXOLITINIB
     Indication: Graft versus host disease
     Dosage: 5 MILLIGRAM
     Route: 048
     Dates: start: 20220830

REACTIONS (5)
  - Pulmonary tuberculosis [Fatal]
  - Graft versus host disease in lung [Fatal]
  - Pulmonary fibrosis [Fatal]
  - Respiratory failure [Fatal]
  - COVID-19 [Fatal]
